FAERS Safety Report 6817547-0 (Version None)
Quarter: 2010Q2

REPORT INFORMATION
  Report Type: 
  Country: None (occurrence: None)
  Receive Date: 20100630
  Receipt Date: 20100622
  Transmission Date: 20101027
  Serious: Yes (Hospitalization)
  Sender: FDA-Public Use
  Company Number: NPIL/SEV/H/2010/10 DPC10-028

PATIENT
  Age: 79 Year
  Sex: Female

DRUGS (6)
  1. SEVOFLURANE [Suspect]
     Indication: RENAL CELL CARCINOMA
     Dosage: 1 MAC, ONCE
  2. PROPOFOL [Concomitant]
  3. FENTANYL CITRATE [Concomitant]
  4. VECURONIUM BROMIDE [Concomitant]
  5. AMOXICILLIN [Concomitant]
  6. GENTAMICIN [Concomitant]

REACTIONS (3)
  - CARDIAC ARREST [None]
  - TORSADE DE POINTES [None]
  - VENTRICULAR EXTRASYSTOLES [None]
